FAERS Safety Report 4506116-3 (Version None)
Quarter: 2004Q4

REPORT INFORMATION
  Report Type: 
  Country: None (occurrence: None)
  Receive Date: 20041025
  Receipt Date: 20040127
  Transmission Date: 20050328
  Serious: Yes (Other)
  Sender: FDA-Public Use
  Company Number: US-JNJFOC-20031201437

PATIENT
  Age: 56 Year
  Sex: Female
  Weight: 70.7611 kg

DRUGS (8)
  1. REMICADE [Suspect]
     Indication: RHEUMATOID ARTHRITIS
     Dosage: 8 MG/KG, INTRAVENOUS
     Route: 042
     Dates: start: 20030729
  2. REMICADE [Suspect]
     Indication: RHEUMATOID ARTHRITIS
     Dosage: 8 MG/KG, INTRAVENOUS
     Route: 042
     Dates: start: 20031008
  3. REMICADE [Suspect]
     Indication: RHEUMATOID ARTHRITIS
     Dosage: 8 MG/KG, INTRAVENOUS
     Route: 042
     Dates: start: 20031202
  4. METHOTREXATE [Concomitant]
  5. CELEBREX [Concomitant]
  6. NEXIUM [Concomitant]
  7. ACTONEL [Concomitant]
  8. LEXAPRO [Concomitant]

REACTIONS (1)
  - TUBERCULOSIS [None]
